FAERS Safety Report 15696057 (Version 3)
Quarter: 2019Q2

REPORT INFORMATION
  Report Type: Report from Study
  Country: UA (occurrence: UA)
  Receive Date: 20181206
  Receipt Date: 20190626
  Transmission Date: 20190711
  Serious: Yes (Death, Life-Threatening, Other)
  Sender: FDA-Public Use
  Company Number: UA-PFIZER INC-2018500025

PATIENT
  Age: 67 Year
  Sex: Male
  Weight: 90 kg

DRUGS (20)
  1. GRASTIM [Concomitant]
     Dosage: UNK
     Dates: start: 20181101
  2. ONDANSETRON [Concomitant]
     Active Substance: ONDANSETRON
     Dosage: UNK
     Dates: start: 20181025, end: 20181025
  3. TOMOHEXOL-300 [Concomitant]
     Dosage: UNK
     Dates: start: 20181017, end: 20181017
  4. ATORIS [Concomitant]
     Active Substance: ATORVASTATIN CALCIUM
     Dosage: UNK
     Dates: start: 201708
  5. LOPERAMIDE [Concomitant]
     Active Substance: LOPERAMIDE
     Dosage: UNK
     Dates: start: 20181028
  6. SODIUM CHLORIDE. [Concomitant]
     Active Substance: SODIUM CHLORIDE
     Dosage: SOLUTION, 0.9%
     Dates: start: 20181025, end: 20181025
  7. PANANGIN [Concomitant]
     Active Substance: MAGNESIUM ASPARTATE\POTASSIUM ASPARTATE
     Dosage: UNK
     Dates: start: 20181025, end: 20181025
  8. IRINOTECAN HCL [Suspect]
     Active Substance: IRINOTECAN HYDROCHLORIDE
     Indication: SMALL CELL LUNG CANCER
     Dosage: 735 MG, TOTAL DAILY DOSE, CYCLE 1
     Route: 041
     Dates: start: 20181025
  9. ONDANSETRON [Concomitant]
     Active Substance: ONDANSETRON
     Dosage: UNK
     Dates: start: 20181101
  10. TAVEGYL [Concomitant]
     Active Substance: CLEMASTINE FUMARATE
     Dosage: UNK
     Dates: start: 20181025, end: 20181025
  11. DEXAMETHASONE. [Concomitant]
     Active Substance: DEXAMETHASONE
     Dosage: UNK
     Dates: start: 20181025, end: 20181025
  12. SODIUM CHLORIDE. [Concomitant]
     Active Substance: SODIUM CHLORIDE
     Dosage: SOLUTION, 0.9%
     Dates: start: 20181101
  13. IRINOTECAN HCL [Suspect]
     Active Substance: IRINOTECAN HYDROCHLORIDE
     Dosage: UNK
  14. IRINOTECAN HCL [Suspect]
     Active Substance: IRINOTECAN HYDROCHLORIDE
     Dosage: UNK
     Dates: end: 20181025
  15. VALODIP [Concomitant]
     Dosage: UNK
     Dates: start: 201708
  16. IRINOTECAN HCL [Suspect]
     Active Substance: IRINOTECAN HYDROCHLORIDE
     Dosage: UNK
  17. ATROPIN [ATROPINE] [Concomitant]
     Dosage: UNK
     Dates: start: 20181025, end: 20181025
  18. ASCORBIC ACID. [Concomitant]
     Active Substance: ASCORBIC ACID
     Dosage: UNK
     Dates: start: 20181101
  19. MEDROL [Concomitant]
     Active Substance: METHYLPREDNISOLONE
     Dosage: UNK
     Dates: start: 20181101
  20. TRISOL [ACETIC ACID;ALANINE;ARGININE;ASPARTIC ACID;CYSTEINE;GLUTAMIC A [Concomitant]
     Dosage: UNK
     Dates: start: 20181101

REACTIONS (1)
  - Acute hepatic failure [Fatal]

NARRATIVE: CASE EVENT DATE: 20181105
